FAERS Safety Report 5541721-7 (Version None)
Quarter: 2007Q4

REPORT INFORMATION
  Report Type: 
  Country: None (occurrence: None)
  Receive Date: 20071210
  Receipt Date: 20071205
  Transmission Date: 20080405
  Serious: Yes (Other)
  Sender: FDA-Public Use
  Company Number: AU-BRISTOL-MYERS SQUIBB COMPANY-13965405

PATIENT
  Sex: Female

DRUGS (1)
  1. ABILIFY [Suspect]
     Indication: DEPRESSION
     Dates: start: 20070601

REACTIONS (9)
  - BLOOD CHOLESTEROL INCREASED [None]
  - DENTAL CARIES [None]
  - EYE DISORDER [None]
  - FAECAL INCONTINENCE [None]
  - HYPOTENSION [None]
  - THIRST DECREASED [None]
  - URINE OUTPUT INCREASED [None]
  - WEIGHT INCREASED [None]
  - WOLFF-PARKINSON-WHITE SYNDROME [None]
